FAERS Safety Report 12995031 (Version 1)
Quarter: 2016Q4

REPORT INFORMATION
  Report Type: Spontaneous
  Country: GB (occurrence: GB)
  Receive Date: 20161202
  Receipt Date: 20161202
  Transmission Date: 20170207
  Serious: Yes (Death)
  Sender: FDA-Public Use
  Company Number: GB-ALSI-201600344

PATIENT
  Age: 62 Year
  Sex: Female

DRUGS (1)
  1. OXYGEN. [Suspect]
     Active Substance: OXYGEN
     Indication: LUNG CARCINOMA CELL TYPE UNSPECIFIED STAGE IV

REACTIONS (2)
  - Accident [Fatal]
  - Intentional product misuse [None]
